FAERS Safety Report 23504929 (Version 1)
Quarter: 2024Q1

REPORT INFORMATION
  Report Type: Spontaneous
  Country: GB (occurrence: GB)
  Receive Date: 20240209
  Receipt Date: 20240209
  Transmission Date: 20240409
  Serious: No
  Sender: FDA-Public Use
  Company Number: None

PATIENT
  Age: 81 Year
  Sex: Female
  Weight: 47 kg

DRUGS (8)
  1. GABAPENTIN [Suspect]
     Active Substance: GABAPENTIN
     Indication: Product used for unknown indication
     Dosage: 1200 MILLIGRAM, QD (CAPSULE)
     Route: 065
     Dates: start: 20221121
  2. CALCIUM CARBONATE\CHOLECALCIFEROL [Concomitant]
     Active Substance: CALCIUM CARBONATE\CHOLECALCIFEROL
     Indication: Ill-defined disorder
     Dosage: 1 DOSAGE FORM, BID (SWALLOW ONE TABLET TWICE A DAY TO HELP PROTECT ..)
     Route: 048
     Dates: start: 20221121
  3. ASPIRIN [Concomitant]
     Active Substance: ASPIRIN
     Indication: Ill-defined disorder
     Dosage: 1 DOSAGE FORM, QD (ONE TABLET TO BE TAKEN ONCE A DAY TO HELP PREV..)
     Route: 065
     Dates: start: 20221121
  4. ATORVASTATIN [Concomitant]
     Active Substance: ATORVASTATIN
     Indication: Ill-defined disorder
     Dosage: 1 DOSAGE FORM, QD (ONE TABLET TO BE TAKEN DAILY IN TH EVENINGS TO)
     Route: 065
     Dates: start: 20221121
  5. COCODAMOL [Concomitant]
     Active Substance: ACETAMINOPHEN\CODEINE PHOSPHATE
     Indication: Ill-defined disorder
     Dosage: UNK, QID (TAKE TWO 4 TIMES/DAY )
     Route: 065
     Dates: start: 20221121
  6. FENBID [Concomitant]
     Indication: Ill-defined disorder
     Dosage: UNK, TID (APPLY THREE TIMES/DAY)
     Route: 065
     Dates: start: 20221121
  7. LANSOPRAZOLE [Concomitant]
     Active Substance: LANSOPRAZOLE
     Indication: Ill-defined disorder
     Dosage: 1 DOSAGE FORM, QD (ONE CAPSULE TO BE TAKEN ONCE A DAY)
     Route: 065
     Dates: start: 20221121
  8. SENNA [Concomitant]
     Active Substance: SENNA LEAF\SENNOSIDES\SENNOSIDES A AND B
     Indication: Ill-defined disorder
     Dosage: UNK, HS (ONE-TWO TABLETS TO BE TAKEN ONCE A DAY AT NIGHT)
     Route: 065
     Dates: start: 20221121

REACTIONS (1)
  - Dizziness [Recovered/Resolved]
